FAERS Safety Report 15237780 (Version 2)
Quarter: 2018Q3

REPORT INFORMATION
  Report Type: Spontaneous
  Country: GB (occurrence: GB)
  Receive Date: 20180803
  Receipt Date: 20180824
  Transmission Date: 20181010
  Serious: Yes (Other)
  Sender: FDA-Public Use
  Company Number: GB-AUROBINDO-AUR-APL-2018-039379

PATIENT
  Age: 72 Year
  Sex: Female
  Weight: 60.32 kg

DRUGS (9)
  1. ACETYLSALICYLIC ACID [Concomitant]
     Active Substance: ASPIRIN
     Indication: POLYCYTHAEMIA VERA
  2. MULTIVITAMIN                       /00097801/ [Concomitant]
     Active Substance: VITAMINS
     Indication: PRODUCT USED FOR UNKNOWN INDICATION
     Dosage: ()
  3. VITAMIN D                          /00107901/ [Concomitant]
     Active Substance: ERGOCALCIFEROL
     Indication: PRODUCT USED FOR UNKNOWN INDICATION
  4. ALENDRONIC ACID [Suspect]
     Active Substance: ALENDRONIC ACID
     Indication: OSTEOPOROSIS PROPHYLAXIS
     Dosage: 70 MILLIGRAM
     Route: 048
     Dates: start: 20180623, end: 20180709
  5. TILDIEM [Concomitant]
     Active Substance: DILTIAZEM HYDROCHLORIDE
     Indication: PRODUCT USED FOR UNKNOWN INDICATION
  6. PREDNISOLONE. [Concomitant]
     Active Substance: PREDNISOLONE
  7. DERMOVATE [Concomitant]
     Active Substance: CLOBETASOL
     Indication: ECZEMA
     Dosage: ()
  8. OMEPRAZOLE. [Concomitant]
     Active Substance: OMEPRAZOLE
     Indication: PRODUCT USED FOR UNKNOWN INDICATION
  9. PREDNISOLONE. [Concomitant]
     Active Substance: PREDNISOLONE
     Indication: ECZEMA

REACTIONS (9)
  - Malaise [Recovered/Resolved]
  - Faeces discoloured [Recovered/Resolved]
  - Vomiting [Recovered/Resolved]
  - Balance disorder [Recovered/Resolved]
  - Diarrhoea haemorrhagic [Recovering/Resolving]
  - Abdominal pain upper [Recovered/Resolved]
  - Flatulence [Not Recovered/Not Resolved]
  - Rectal haemorrhage [Unknown]
  - Feeding disorder [Unknown]

NARRATIVE: CASE EVENT DATE: 20180708
